FAERS Safety Report 19217341 (Version 5)
Quarter: 2021Q3

REPORT INFORMATION
  Report Type: Spontaneous
  Country: US (occurrence: US)
  Receive Date: 20210505
  Receipt Date: 20210903
  Transmission Date: 20211014
  Serious: Yes (Other)
  Sender: FDA-Public Use
  Company Number: US-PFIZER INC-2020208436

PATIENT
  Age: 61 Year
  Sex: Female
  Weight: 71.67 kg

DRUGS (2)
  1. XELJANZ XR [Suspect]
     Active Substance: TOFACITINIB CITRATE
     Indication: INTESTINAL TRANSPLANT
     Dosage: 11 MG
  2. XELJANZ XR [Suspect]
     Active Substance: TOFACITINIB CITRATE
     Indication: CORNEAL TRANSPLANT

REACTIONS (3)
  - Off label use [Unknown]
  - Ocular discomfort [Unknown]
  - Drug effective for unapproved indication [Unknown]
